FAERS Safety Report 11076207 (Version 2)
Quarter: 2015Q2

REPORT INFORMATION
  Report Type: Spontaneous
  Country: IT (occurrence: IT)
  Receive Date: 20150429
  Receipt Date: 20150508
  Transmission Date: 20150821
  Serious: Yes (Death)
  Sender: FDA-Public Use
  Company Number: IT-TEVA-558384ISR

PATIENT

DRUGS (7)
  1. FLUOROURACIL. [Suspect]
     Active Substance: FLUOROURACIL
     Indication: GASTRIC CANCER
     Dosage: 400 MG/M2 DAILY; 400 MG/M2 DAY 1
     Route: 040
  2. DOCETAXEL. [Suspect]
     Active Substance: DOCETAXEL
     Indication: GASTRIC CANCER
     Dosage: 60 MG/M2 DAILY; 60 MG/M2 DAY 1
     Route: 065
  3. PANITUMUMAB [Suspect]
     Active Substance: PANITUMUMAB
     Indication: GASTRIC CANCER
     Dosage: 6 MG/KG DAILY;
     Route: 065
  4. LEVOFOLINIC ACID [Suspect]
     Active Substance: LEVOLEUCOVORIN
     Indication: GASTRIC CANCER
     Dosage: 100 MG/M2 DAILY; 100 MG/M2 DAY 1-2
     Route: 065
  5. PEGFILGRASTIM [Concomitant]
     Active Substance: PEGFILGRASTIM
     Route: 065
  6. FLUOROURACIL. [Suspect]
     Active Substance: FLUOROURACIL
     Dosage: 600 MG/M2 DAILY; 600 MG/M2 22 HOURS CONTINUOUS INFUSION ON DAY 1 AND 2
     Route: 041
  7. CISPLATIN. [Suspect]
     Active Substance: CISPLATIN
     Indication: GASTRIC CANCER
     Dosage: 50 MG/M2 DAILY; 50 MG/M2 DAY 1
     Route: 065

REACTIONS (1)
  - Gastric haemorrhage [Fatal]
